FAERS Safety Report 8463007-3 (Version None)
Quarter: 2012Q2

REPORT INFORMATION
  Report Type: 
  Country: None (occurrence: None)
  Receive Date: 20120625
  Receipt Date: 20120619
  Transmission Date: 20120825
  Serious: Yes (Hospitalization)
  Sender: FDA-Public Use
  Company Number: GB-GLAXOSMITHKLINE-B0809102A

PATIENT
  Age: 86 Year
  Sex: Female
  Weight: 72.4 kg

DRUGS (4)
  1. BETAHISTINE [Concomitant]
     Indication: DIZZINESS
     Dosage: 48MG PER DAY
     Route: 048
  2. RANITIDINE [Concomitant]
     Indication: ULCER
     Dosage: 300MG PER DAY
     Route: 048
     Dates: start: 20110301
  3. BECONASE [Suspect]
     Indication: RHINITIS
     Dosage: 4IUAX PER DAY
     Route: 045
     Dates: start: 20120423, end: 20120530
  4. CLOPIDOGREL [Concomitant]
     Indication: HEART VALVE REPLACEMENT
     Dosage: 75MG PER DAY
     Route: 048
     Dates: start: 20110501

REACTIONS (2)
  - NASAL CAVITY PACKING [None]
  - EPISTAXIS [None]
